FAERS Safety Report 8274776-X (Version None)
Quarter: 2012Q2

REPORT INFORMATION
  Report Type: 
  Country: None (occurrence: None)
  Receive Date: 20120411
  Receipt Date: 20111222
  Transmission Date: 20120825
  Serious: No
  Sender: FDA-Public Use
  Company Number: US-TEVA-2011006341

PATIENT
  Sex: Female
  Weight: 87.622 kg

DRUGS (8)
  1. NUVIGIL [Suspect]
     Indication: BIPOLAR I DISORDER
     Dosage: 250 MILLIGRAM;
     Route: 048
     Dates: start: 20111220
  2. WELLBUTRIN SR [Concomitant]
  3. ADDERALL 5 [Concomitant]
  4. KLONOPIN [Concomitant]
     Dates: start: 20111001
  5. EFFEXOR [Concomitant]
     Dates: start: 19960101
  6. CARBAMAZEPINE [Concomitant]
  7. TEMAZEPAM [Concomitant]
  8. BENADRYL [Concomitant]
     Dates: start: 20110601

REACTIONS (1)
  - DRUG INEFFECTIVE FOR UNAPPROVED INDICATION [None]
